FAERS Safety Report 9125567 (Version 2)
Quarter: 2013Q2

REPORT INFORMATION
  Report Type: Spontaneous
  Country: US (occurrence: US)
  Receive Date: 20130121
  Receipt Date: 20130402
  Transmission Date: 20140414
  Serious: Yes (Life-Threatening, Hospitalization, Disabling)
  Sender: FDA-Public Use
  Company Number: US-GLAXOSMITHKLINE-A1008547A

PATIENT
  Age: 38 Year
  Sex: Female

DRUGS (2)
  1. PROMACTA [Suspect]
     Indication: IDIOPATHIC THROMBOCYTOPENIC PURPURA
     Dosage: 50MG PER DAY
     Route: 048
     Dates: start: 20121223
  2. PREDNISONE [Suspect]
     Indication: PRODUCT USED FOR UNKNOWN INDICATION
     Route: 065

REACTIONS (9)
  - Haemorrhage [Unknown]
  - Swelling face [Unknown]
  - Eye swelling [Unknown]
  - Abdominal distension [Unknown]
  - Swelling [Unknown]
  - Local swelling [Unknown]
  - Hypoaesthesia [Unknown]
  - Platelet count decreased [Unknown]
  - Weight increased [Unknown]
